FAERS Safety Report 8304751-8 (Version None)
Quarter: 2012Q2

REPORT INFORMATION
  Report Type: 
  Country: None (occurrence: None)
  Receive Date: 20120423
  Receipt Date: 20120410
  Transmission Date: 20120825
  Serious: Yes (Life-Threatening)
  Sender: FDA-Public Use
  Company Number: DE-FRI-1000029365

PATIENT
  Age: 74 Year
  Sex: Female
  Weight: 83 kg

DRUGS (6)
  1. THEOPHYLLINE [Concomitant]
     Dates: start: 20111001
  2. NOVOPULMON [Concomitant]
     Dates: start: 20111001
  3. FORMOTOP [Concomitant]
     Dates: start: 20111027
  4. JODID [Concomitant]
     Dates: end: 20111001
  5. ROFLUMILAST [Suspect]
     Indication: CHRONIC OBSTRUCTIVE PULMONARY DISEASE
     Dosage: 500 MCG
     Route: 048
     Dates: start: 20110824, end: 20111117
  6. PANTOPRAZOLE [Concomitant]
     Dates: start: 20111001

REACTIONS (10)
  - PANIC ATTACK [None]
  - HYPERHIDROSIS [None]
  - TREMOR [None]
  - CONSTIPATION [None]
  - NAUSEA [None]
  - DYSPEPSIA [None]
  - SLEEP DISORDER [None]
  - ASTHENIA [None]
  - MUSCLE SPASMS [None]
  - SOMNOLENCE [None]
